FAERS Safety Report 4976613-5 (Version None)
Quarter: 2006Q2

REPORT INFORMATION
  Report Type: 
  Country: None (occurrence: None)
  Receive Date: 20060419
  Receipt Date: 20060220
  Transmission Date: 20061013
  Serious: Yes (Hospitalization, Disabling)
  Sender: FDA-Public Use
  Company Number: US-MERCK-0602USA05097

PATIENT
  Age: 35 Year
  Sex: Male
  Weight: 98 kg

DRUGS (6)
  1. VIOXX [Suspect]
     Indication: PAIN IN EXTREMITY
     Route: 048
     Dates: start: 20010701, end: 20030501
  2. VIOXX [Suspect]
     Route: 048
     Dates: start: 20010701, end: 20030501
  3. VIOXX [Suspect]
     Route: 048
     Dates: start: 20010701, end: 20030501
  4. VIOXX [Suspect]
     Indication: ARTHRALGIA
     Route: 048
     Dates: start: 20010701, end: 20030501
  5. VIOXX [Suspect]
     Route: 048
     Dates: start: 20010701, end: 20030501
  6. VIOXX [Suspect]
     Route: 048
     Dates: start: 20010701, end: 20030501

REACTIONS (18)
  - ANGINA PECTORIS [None]
  - CARDIAC DISORDER [None]
  - CARDIAC FAILURE CONGESTIVE [None]
  - CEREBROVASCULAR ACCIDENT [None]
  - CHEST DISCOMFORT [None]
  - CORONARY ARTERY RESTENOSIS [None]
  - CORONARY ARTERY STENOSIS [None]
  - COUGH [None]
  - DEPRESSION [None]
  - DIZZINESS POSTURAL [None]
  - HYPERLIPIDAEMIA [None]
  - HYPERTENSION [None]
  - LUNG DISORDER [None]
  - MICTURITION URGENCY [None]
  - MIGRAINE [None]
  - MYOCARDIAL INFARCTION [None]
  - MYOCARDIAL ISCHAEMIA [None]
  - NON-CARDIAC CHEST PAIN [None]
